FAERS Safety Report 13747535 (Version 2)
Quarter: 2022Q1

REPORT INFORMATION
  Report Type: Report from Study
  Country: US (occurrence: US)
  Receive Date: 20170712
  Receipt Date: 20220303
  Transmission Date: 20220423
  Serious: Yes (Other)
  Sender: FDA-Public Use
  Company Number: US-TEVA-786490USA

PATIENT
  Age: 50 Year
  Sex: Male

DRUGS (1)
  1. AUSTEDO [Suspect]
     Active Substance: DEUTETRABENAZINE
     Indication: Huntington^s disease
     Dosage: 48 MILLIGRAM DAILY; 2 TABLETS OF 12 MG TWICE DAILY
     Dates: start: 20170430, end: 20170702

REACTIONS (3)
  - Choking [Recovered/Resolved]
  - Huntington^s disease [Recovered/Resolved]
  - Food aversion [Recovered/Resolved]

NARRATIVE: CASE EVENT DATE: 20170101
